FAERS Safety Report 5501715-4 (Version None)
Quarter: 2007Q4

REPORT INFORMATION
  Report Type: 
  Country: None (occurrence: None)
  Receive Date: 20071030
  Receipt Date: 20071017
  Transmission Date: 20080405
  Serious: Yes (Other)
  Sender: FDA-Public Use
  Company Number: US-AMGEN-KDL239459

PATIENT
  Sex: Female
  Weight: 85.8 kg

DRUGS (5)
  1. ENBREL [Suspect]
     Indication: PSORIASIS
     Route: 058
     Dates: start: 20040615, end: 20061201
  2. ALDOMET [Suspect]
  3. LISINOPRIL [Suspect]
     Dates: end: 20070110
  4. OLUX [Concomitant]
     Route: 061
     Dates: start: 20060901
  5. PROZAC [Concomitant]
     Dates: end: 20070115

REACTIONS (1)
  - ABORTION SPONTANEOUS [None]
